FAERS Safety Report 23429395 (Version 1)
Quarter: 2024Q1

REPORT INFORMATION
  Report Type: Spontaneous
  Country: US (occurrence: None)
  Receive Date: 20240122
  Receipt Date: 20240122
  Transmission Date: 20240409
  Serious: Yes (Other)
  Sender: FDA-Public Use
  Company Number: None

PATIENT
  Age: 57 Year
  Sex: Female

DRUGS (1)
  1. NUCALA [Suspect]
     Active Substance: MEPOLIZUMAB
     Indication: Topical steroid withdrawal reaction
     Dosage: SUBCUTANEOUS
     Route: 058
     Dates: start: 20240117, end: 20240117

REACTIONS (3)
  - Swelling face [None]
  - Pain of skin [None]
  - Inflammation [None]

NARRATIVE: CASE EVENT DATE: 20240117
